FAERS Safety Report 14909711 (Version 19)
Quarter: 2024Q4

REPORT INFORMATION
  Report Type: Spontaneous
  Country: BR (occurrence: BR)
  Receive Date: 20180517
  Receipt Date: 20241126
  Transmission Date: 20250114
  Serious: Yes (Hospitalization, Other)
  Sender: GLAXOSMITHKLINE
  Company Number: BR-GLAXOSMITHKLINE-BR2016GSK185885

PATIENT

DRUGS (12)
  1. BENLYSTA [Suspect]
     Active Substance: BELIMUMAB
     Indication: Systemic lupus erythematosus
     Dosage: 840 MG
     Route: 042
     Dates: start: 20151020
  2. BENLYSTA [Suspect]
     Active Substance: BELIMUMAB
     Dosage: 760 MG, Q4W
     Route: 042
  3. BENLYSTA [Suspect]
     Active Substance: BELIMUMAB
     Dosage: 760 MG, MO, 1 X 400 MG AND 3 X 120 MG EVERY 30 DAYS
     Route: 042
     Dates: start: 2016, end: 2018
  4. BENLYSTA [Suspect]
     Active Substance: BELIMUMAB
     Dosage: 120 MG, Q4W
  5. BENLYSTA [Suspect]
     Active Substance: BELIMUMAB
     Dosage: 760 MG
     Dates: start: 2023
  6. BENLYSTA [Suspect]
     Active Substance: BELIMUMAB
     Dosage: 400 MG, MO, 1 X 400 MG
  7. BENLYSTA [Suspect]
     Active Substance: BELIMUMAB
     Dosage: 360 MG, MO, 3 X 120 MG
  8. RITUXIMAB [Suspect]
     Active Substance: RITUXIMAB
     Indication: Product used for unknown indication
     Dosage: UNK
  9. INFLUENZA VIRUS VACCINE [Concomitant]
     Active Substance: INFLUENZA VIRUS VACCINE
     Indication: Prophylaxis
     Dosage: UNK
     Dates: start: 20180509, end: 20180509
  10. HYDROXYCHLOROQUINE [Concomitant]
     Active Substance: HYDROXYCHLOROQUINE
     Indication: Product used for unknown indication
     Dosage: 400 MG, QD (1X FROM MONDAY TO FRIDAY)
  11. Alenia [Concomitant]
     Indication: Product used for unknown indication
     Dosage: UNK
  12. PREDNISONE [Concomitant]
     Active Substance: PREDNISONE
     Indication: Product used for unknown indication
     Dosage: UNK

REACTIONS (28)
  - Pneumonia [Recovered/Resolved]
  - Musculoskeletal stiffness [Unknown]
  - Limb operation [Recovering/Resolving]
  - Arthritis [Recovered/Resolved]
  - Tendon pain [Recovered/Resolved]
  - Arthropathy [Recovered/Resolved]
  - Weight decreased [Recovered/Resolved]
  - Influenza [Recovered/Resolved]
  - Pyrexia [Recovered/Resolved]
  - Cough [Recovered/Resolved]
  - Fatigue [Unknown]
  - Condition aggravated [Unknown]
  - Malaise [Unknown]
  - Illness [Unknown]
  - Respiratory disorder [Recovered/Resolved]
  - Decreased immune responsiveness [Recovered/Resolved]
  - Ear pain [Recovered/Resolved]
  - Conjunctivitis viral [Not Recovered/Not Resolved]
  - Conjunctivitis [Recovered/Resolved]
  - Feeling abnormal [Unknown]
  - Bronchial disorder [Recovered/Resolved]
  - Wheezing [Recovered/Resolved]
  - Therapy interrupted [Unknown]
  - Therapeutic product effect decreased [Unknown]
  - Circumstance or information capable of leading to medication error [Unknown]
  - Overdose [Unknown]
  - Inappropriate schedule of product administration [Unknown]
  - Product dose omission issue [Unknown]

NARRATIVE: CASE EVENT DATE: 20180213
